FAERS Safety Report 19363182 (Version 1)
Quarter: 2021Q2

REPORT INFORMATION
  Report Type: Spontaneous
  Country: JP (occurrence: JP)
  Receive Date: 20210602
  Receipt Date: 20210602
  Transmission Date: 20210717
  Serious: Yes (Hospitalization, Other)
  Sender: FDA-Public Use
  Company Number: JP-UNITED THERAPEUTICS-UNT-2021-009581

PATIENT
  Age: 35 Year
  Sex: Female

DRUGS (3)
  1. REMODULIN [Suspect]
     Active Substance: TREPROSTINIL
     Indication: HERITABLE PULMONARY ARTERIAL HYPERTENSION
     Dosage: 0.070 ?G/KG TO 0.080 ?G/KG, CONTINUING
     Route: 041
  2. MACITENTAN [Suspect]
     Active Substance: MACITENTAN
     Indication: HERITABLE PULMONARY ARTERIAL HYPERTENSION
     Dosage: 10 MG, UNK
     Route: 065
  3. SILDENAFIL. [Suspect]
     Active Substance: SILDENAFIL
     Indication: HERITABLE PULMONARY ARTERIAL HYPERTENSION
     Dosage: 30?60 MG, UNK
     Route: 065

REACTIONS (5)
  - Right ventricular failure [Unknown]
  - Adrenocorticotropic hormone deficiency [Unknown]
  - Lymphocytic hypophysitis [Unknown]
  - Autoimmune thyroiditis [Unknown]
  - Pyrexia [Recovered/Resolved]
